FAERS Safety Report 18668328 (Version 1)
Quarter: 2020Q4

REPORT INFORMATION
  Report Type: Spontaneous
  Country: US (occurrence: US)
  Receive Date: 20201224
  Receipt Date: 20201224
  Transmission Date: 20210114
  Serious: Yes (Disabling)
  Sender: FDA-Public Use
  Company Number: None

PATIENT
  Age: 49 Year
  Sex: Female
  Weight: 77.85 kg

DRUGS (25)
  1. MELOXICAM. [Concomitant]
     Active Substance: MELOXICAM
  2. LOSARTAN. [Concomitant]
     Active Substance: LOSARTAN
  3. LINZESS [Concomitant]
     Active Substance: LINACLOTIDE
  4. WOMWN^S DAILY DIABETIC SUPPLEMENT [Concomitant]
  5. MAGNESIUM [Concomitant]
     Active Substance: MAGNESIUM
  6. GLIMEPIRIDE. [Concomitant]
     Active Substance: GLIMEPIRIDE
  7. QUETIAPINE. [Concomitant]
     Active Substance: QUETIAPINE
  8. CYCLOBENZAPRINE. [Concomitant]
     Active Substance: CYCLOBENZAPRINE
  9. CALCIUM [Concomitant]
     Active Substance: CALCIUM
  10. SUCRALFATE. [Concomitant]
     Active Substance: SUCRALFATE
  11. SYMBICORT [Concomitant]
     Active Substance: BUDESONIDE\FORMOTEROL FUMARATE DIHYDRATE
  12. ZINC. [Concomitant]
     Active Substance: ZINC
  13. TRAZODONE [Concomitant]
     Active Substance: TRAZODONE HYDROCHLORIDE
  14. BENTYL [Concomitant]
     Active Substance: DICYCLOMINE HYDROCHLORIDE
  15. PANTAPRAZOLE [Concomitant]
     Active Substance: PANTOPRAZOLE SODIUM
  16. IRON [Concomitant]
     Active Substance: IRON
  17. HYDROXY PAM [Concomitant]
  18. LORATIDINE [Concomitant]
     Active Substance: LORATADINE
  19. MONTELUKAST [Concomitant]
     Active Substance: MONTELUKAST SODIUM
  20. AMBIEN [Suspect]
     Active Substance: ZOLPIDEM TARTRATE
     Indication: INSOMNIA
     Dosage: ?          QUANTITY:1 TABLET(S);?
     Route: 048
     Dates: start: 20160601, end: 20200801
  21. AMLODIPINE [Concomitant]
     Active Substance: AMLODIPINE BESYLATE
  22. POLYETHETHYLENE GLYCOL [Concomitant]
  23. WELLBUTRIN [Concomitant]
     Active Substance: BUPROPION HYDROCHLORIDE
  24. GABAPENTIN. [Concomitant]
     Active Substance: GABAPENTIN
  25. CETIRIZINE [Concomitant]
     Active Substance: CETIRIZINE HYDROCHLORIDE

REACTIONS (4)
  - Insomnia [None]
  - Mental disorder [None]
  - Symptom recurrence [None]
  - Therapy cessation [None]

NARRATIVE: CASE EVENT DATE: 20160801
